FAERS Safety Report 11119514 (Version 1)
Quarter: 2015Q2

REPORT INFORMATION
  Report Type: Spontaneous
  Country: US (occurrence: None)
  Receive Date: 20150515
  Receipt Date: 20150515
  Transmission Date: 20150821
  Serious: No
  Sender: FDA-Public Use
  Company Number: None

PATIENT
  Age: 54 Year
  Sex: Female

DRUGS (1)
  1. MYFORTIC [Suspect]
     Active Substance: MYCOPHENOLATE SODIUM
     Dates: start: 20150425

REACTIONS (7)
  - Erythema [None]
  - Pruritus [None]
  - Rash [None]
  - Pain [None]
  - Oedema peripheral [None]
  - Burning sensation [None]
  - Generalised oedema [None]

NARRATIVE: CASE EVENT DATE: 20150425
